FAERS Safety Report 7198896-6 (Version None)
Quarter: 2010Q4

REPORT INFORMATION
  Report Type: 
  Country: None (occurrence: None)
  Receive Date: 20101227
  Receipt Date: 20101220
  Transmission Date: 20110411
  Serious: Yes (Hospitalization)
  Sender: FDA-Public Use
  Company Number: AU-SANOFI-AVENTIS-2010SA076629

PATIENT
  Age: 68 Year
  Sex: Female

DRUGS (2)
  1. RILUTEK [Suspect]
     Route: 048
     Dates: start: 20100801
  2. ANTIHYPERTENSIVES [Concomitant]

REACTIONS (2)
  - JOINT DISLOCATION [None]
  - SPEECH DISORDER [None]
